FAERS Safety Report 8922021 (Version 1)
Quarter: 2012Q4

REPORT INFORMATION
  Report Type: Spontaneous
  Country: US (occurrence: None)
  Receive Date: 20121120
  Receipt Date: 20121120
  Transmission Date: 20130627
  Serious: No
  Sender: FDA-Public Use
  Company Number: None

PATIENT
  Age: 64 Year
  Sex: Female
  Weight: 63.5 kg

DRUGS (2)
  1. NORTRIPTYLINE [Suspect]
     Indication: HEADACHE
     Dosage: 1 cap in p.m. po
     Route: 048
     Dates: start: 20120924, end: 20120926
  2. NORTRIPTYLINE [Suspect]
     Indication: SLEEPLESSNESS
     Dosage: 1 cap in p.m. po
     Route: 048
     Dates: start: 20120924, end: 20120926

REACTIONS (6)
  - Headache [None]
  - Nausea [None]
  - Feeling abnormal [None]
  - Oedema peripheral [None]
  - Oedema peripheral [None]
  - Apparent death [None]
